FAERS Safety Report 7015704-4 (Version None)
Quarter: 2010Q3

REPORT INFORMATION
  Report Type: 
  Country: None (occurrence: None)
  Receive Date: 20100927
  Receipt Date: 20100129
  Transmission Date: 20110219
  Serious: No
  Sender: FDA-Public Use
  Company Number: US-ASTRAZENECA-2010SE04246

PATIENT
  Age: 54 Year
  Sex: Female
  Weight: 59.9 kg

DRUGS (4)
  1. ARIMIDEX [Suspect]
     Route: 048
     Dates: start: 20091001
  2. SYNTHROID [Concomitant]
  3. PRAVASTATIN [Concomitant]
  4. HERCEPTIN [Concomitant]

REACTIONS (3)
  - ARTHRALGIA [None]
  - HAIR GROWTH ABNORMAL [None]
  - PAIN IN EXTREMITY [None]
